FAERS Safety Report 14166817 (Version 1)
Quarter: 2017Q4

REPORT INFORMATION
  Report Type: Spontaneous
  Country: US (occurrence: US)
  Receive Date: 20171107
  Receipt Date: 20171107
  Transmission Date: 20180321
  Serious: No
  Sender: FDA-Public Use
  Company Number: US-BAYER-2017-214336

PATIENT
  Age: 77 Year
  Sex: Male
  Weight: 69 kg

DRUGS (4)
  1. TYLENOL [Concomitant]
     Active Substance: ACETAMINOPHEN
  2. CHOLESTEROL [Concomitant]
     Active Substance: CHOLESTEROL
  3. ALEVE [Suspect]
     Active Substance: NAPROXEN SODIUM
     Indication: ARTHRALGIA
  4. ALEVE [Suspect]
     Active Substance: NAPROXEN SODIUM
     Indication: PAIN
     Route: 048

REACTIONS (2)
  - Product use issue [Unknown]
  - Increased tendency to bruise [Not Recovered/Not Resolved]

NARRATIVE: CASE EVENT DATE: 2017
